FAERS Safety Report 13193439 (Version 2)
Quarter: 2017Q1

REPORT INFORMATION
  Report Type: Report from Study
  Country: None (occurrence: US)
  Receive Date: 20170207
  Receipt Date: 20170214
  Transmission Date: 20170428
  Serious: Yes (Hospitalization)
  Sender: FDA-Public Use
  Company Number: US-ABBVIE-16K-163-1788932-00

PATIENT
  Age: 64 Year
  Sex: Female
  Weight: 50.39 kg

DRUGS (9)
  1. LEVOTHYROXINE. [Concomitant]
     Active Substance: LEVOTHYROXINE
     Indication: THYROID DISORDER
  2. ASPIRIN. [Concomitant]
     Active Substance: ASPIRIN
     Indication: PAIN
  3. HUMIRA [Suspect]
     Active Substance: ADALIMUMAB
     Route: 058
     Dates: start: 201701
  4. HUMIRA [Suspect]
     Active Substance: ADALIMUMAB
     Route: 058
     Dates: start: 2016, end: 2016
  5. PHENERGAN [Concomitant]
     Active Substance: PROMETHAZINE HYDROCHLORIDE
     Indication: PRODUCT USED FOR UNKNOWN INDICATION
  6. CLONAZEPAM. [Concomitant]
     Active Substance: CLONAZEPAM
     Indication: ANXIETY
  7. ZOFRAN [Concomitant]
     Active Substance: ONDANSETRON HYDROCHLORIDE
     Indication: PRODUCT USED FOR UNKNOWN INDICATION
  8. HUMIRA [Suspect]
     Active Substance: ADALIMUMAB
     Indication: CROHN^S DISEASE
     Route: 058
     Dates: start: 201505, end: 201512
  9. HUMIRA [Suspect]
     Active Substance: ADALIMUMAB
     Route: 058
     Dates: start: 201611, end: 201611

REACTIONS (14)
  - Drug ineffective [Unknown]
  - Weight decreased [Recovering/Resolving]
  - Intestinal obstruction [Recovering/Resolving]
  - Intestinal anastomosis complication [Recovering/Resolving]
  - Diarrhoea [Recovered/Resolved]
  - Abdominal pain [Recovering/Resolving]
  - Pyrexia [Unknown]
  - Abdominal pain [Recovered/Resolved]
  - Faecaloma [Recovering/Resolving]
  - Abdominal distension [Recovered/Resolved]
  - Chills [Unknown]
  - Wrong technique in product usage process [Recovered/Resolved]
  - Pneumonia [Recovered/Resolved]
  - Dyspnoea [Unknown]

NARRATIVE: CASE EVENT DATE: 2015
